FAERS Safety Report 13160561 (Version 2)
Quarter: 2017Q1

REPORT INFORMATION
  Report Type: Report from Study
  Country: GB (occurrence: GB)
  Receive Date: 20170129
  Receipt Date: 20170302
  Transmission Date: 20170428
  Serious: Yes (Other)
  Sender: FDA-Public Use
  Company Number: GB-ALEXION PHARMACEUTICALS INC.-A201700573

PATIENT
  Age: 4 Month
  Sex: Female
  Weight: 15.55 kg

DRUGS (2)
  1. ENB-0040 [Suspect]
     Active Substance: ASFOTASE ALFA
     Indication: HYPOPHOSPHATASIA
     Dosage: 2.0 MG/KG, TIW
     Route: 058
  2. ENB-0040 [Suspect]
     Active Substance: ASFOTASE ALFA
     Dosage: 2.5 MG/KG, TIW
     Route: 058
     Dates: start: 20120301

REACTIONS (9)
  - Asthenia [Not Recovered/Not Resolved]
  - Snoring [Unknown]
  - Middle ear effusion [Unknown]
  - Craniosynostosis [Not Recovered/Not Resolved]
  - Papilloedema [Not Recovered/Not Resolved]
  - Sleep apnoea syndrome [Unknown]
  - Tooth hypoplasia [Not Recovered/Not Resolved]
  - Conductive deafness [Unknown]
  - Optic nerve disorder [Unknown]

NARRATIVE: CASE EVENT DATE: 201207
